FAERS Safety Report 19174438 (Version 1)
Quarter: 2021Q2

REPORT INFORMATION
  Report Type: Spontaneous
  Country: US (occurrence: US)
  Receive Date: 20210423
  Receipt Date: 20210423
  Transmission Date: 20210717
  Serious: No
  Sender: FDA-Public Use
  Company Number: US-LANNETT COMPANY, INC.-US-2020LAN000292

PATIENT
  Sex: Male
  Weight: 134 kg

DRUGS (3)
  1. SUCRALFATE. [Concomitant]
     Active Substance: SUCRALFATE
     Indication: ULCER
     Dosage: UNK, 1 PILL AT NIGHT
     Route: 065
  2. LEVOTHYROXINE SODIUM. [Suspect]
     Active Substance: LEVOTHYROXINE SODIUM
     Indication: PRODUCT USED FOR UNKNOWN INDICATION
     Dosage: UNK
     Route: 065
  3. SUCRALFATE. [Concomitant]
     Active Substance: SUCRALFATE
     Indication: SMALL INTESTINAL RESECTION
     Dosage: UNK, 3 TIMES A DAY
     Route: 065

REACTIONS (12)
  - Muscle spasms [Unknown]
  - Hyperhidrosis [Unknown]
  - Reaction to excipient [Unknown]
  - Product substitution issue [Unknown]
  - Weight decreased [Unknown]
  - Drug hypersensitivity [Unknown]
  - Oropharyngeal discomfort [Unknown]
  - Tremor [Unknown]
  - Pruritus [Unknown]
  - Dysphagia [Unknown]
  - Dyspnoea [Unknown]
  - Muscular weakness [Unknown]
